FAERS Safety Report 7939369-X (Version None)
Quarter: 2011Q4

REPORT INFORMATION
  Report Type: 
  Country: None (occurrence: None)
  Receive Date: 20111125
  Receipt Date: 20111115
  Transmission Date: 20120403
  Serious: Yes (Other)
  Sender: FDA-Public Use
  Company Number: US-BAYER-2010-004388

PATIENT
  Age: 39 Year
  Sex: Female
  Weight: 67.574 kg

DRUGS (5)
  1. NSAID'S [Concomitant]
     Dosage: UNK UNK, PRN
     Dates: start: 20010101
  2. YAZ [Suspect]
     Indication: ACNE
     Dosage: UNK
     Route: 048
     Dates: start: 20061005, end: 20080828
  3. SOTRET [Concomitant]
     Indication: ACNE
     Dosage: UNK
     Dates: start: 20080101, end: 20090101
  4. ACCUTANE [Concomitant]
     Dosage: 40 MG, BID
     Dates: start: 20090304
  5. SOLODYN (ANTIBIOTIC) [Concomitant]
     Dosage: UNK
     Dates: start: 20060101, end: 20080101

REACTIONS (3)
  - CHOLECYSTITIS [None]
  - BILIARY COLIC [None]
  - PAIN [None]
